APPROVED DRUG PRODUCT: TESLASCAN
Active Ingredient: MANGAFODIPIR TRISODIUM
Strength: 37.9MG/ML
Dosage Form/Route: INJECTABLE;INJECTION
Application: N020652 | Product #001
Applicant: IC TARGETS AS
Approved: Nov 26, 1997 | RLD: No | RS: No | Type: DISCN